FAERS Safety Report 14483430 (Version 3)
Quarter: 2019Q2

REPORT INFORMATION
  Report Type: Spontaneous
  Country: US (occurrence: US)
  Receive Date: 20180204
  Receipt Date: 20190624
  Transmission Date: 20190711
  Serious: No
  Sender: FDA-Public Use
  Company Number: US-BIOGEN-2018BI00518243

PATIENT
  Age: 31 Year
  Sex: Male

DRUGS (1)
  1. TYSABRI [Suspect]
     Active Substance: NATALIZUMAB
     Indication: MULTIPLE SCLEROSIS
     Route: 050
     Dates: start: 20081015, end: 20090105

REACTIONS (4)
  - Diarrhoea [Unknown]
  - Motor dysfunction [Not Recovered/Not Resolved]
  - Urticaria [Unknown]
  - Primary progressive multiple sclerosis [Unknown]

NARRATIVE: CASE EVENT DATE: 200810
